FAERS Safety Report 17132990 (Version 1)
Quarter: 2019Q4

REPORT INFORMATION
  Report Type: Spontaneous
  Country: US (occurrence: US)
  Receive Date: 20191209
  Receipt Date: 20191209
  Transmission Date: 20200122
  Serious: No
  Sender: FDA-Public Use
  Company Number: None

PATIENT
  Age: 27 Year
  Sex: Female
  Weight: 60.75 kg

DRUGS (6)
  1. BUPROPION. [Concomitant]
     Active Substance: BUPROPION
  2. ALAWAY [Suspect]
     Active Substance: KETOTIFEN FUMARATE
     Indication: EYE PRURITUS
     Dosage: ?          QUANTITY:1 DROP(S);?
     Route: 047
  3. VITAMIN D 5000 [Concomitant]
  4. ALAWAY [Suspect]
     Active Substance: KETOTIFEN FUMARATE
     Indication: EYE IRRITATION
     Dosage: ?          QUANTITY:1 DROP(S);?
     Route: 047
  5. DESVENLAFAXINE. [Concomitant]
     Active Substance: DESVENLAFAXINE
  6. LAMOTRIGINE. [Suspect]
     Active Substance: LAMOTRIGINE

REACTIONS (2)
  - Lacrimation increased [None]
  - Instillation site pain [None]

NARRATIVE: CASE EVENT DATE: 20191209
